FAERS Safety Report 5189085-5 (Version None)
Quarter: 2006Q4

REPORT INFORMATION
  Report Type: 
  Country: None (occurrence: None)
  Receive Date: 20061215
  Receipt Date: 20061129
  Transmission Date: 20070319
  Serious: Yes (Other)
  Sender: FDA-Public Use
  Company Number: 2006BM000188

PATIENT
  Age: 55 Year

DRUGS (2)
  1. PREDNISOLONE [Suspect]
     Dosage: 13 MG QD
  2. PREDNISOLONE SODIUM PHOSPHATE [Suspect]

REACTIONS (1)
  - CHORIORETINOPATHY [None]
